FAERS Safety Report 9047471 (Version 1)
Quarter: 2013Q1

REPORT INFORMATION
  Report Type: Report from Study
  Country: US (occurrence: US)
  Receive Date: 20130201
  Receipt Date: 20130201
  Transmission Date: 20140127
  Serious: No
  Sender: FDA-Public Use
  Company Number: US-ABBOTT-12P-163-1029501-00

PATIENT
  Age: 50 Year
  Sex: Female

DRUGS (7)
  1. HUMIRA [Suspect]
     Indication: RHEUMATOID ARTHRITIS
     Dates: start: 20121217
  2. METHOTREXATE [Concomitant]
     Indication: PRODUCT USED FOR UNKNOWN INDICATION
     Dosage: .6 DAILY
  3. SULFASALAZINE [Concomitant]
     Indication: INFLAMMATION
  4. FOLIC ACID [Concomitant]
     Indication: MEDICAL DIET
     Dosage: 1MG DAILY
  5. LISINOPRIL/HCTZ [Concomitant]
     Indication: HYPERTENSION
     Dosage: 12.5/20 DAILY
  6. PREDNISONE [Concomitant]
     Indication: PRODUCT USED FOR UNKNOWN INDICATION
     Dosage: TAPERING OFF
  7. PERCOCET [Concomitant]
     Indication: PRODUCT USED FOR UNKNOWN INDICATION
     Dosage: 5/325

REACTIONS (4)
  - Injection site pain [Recovering/Resolving]
  - Influenza [Recovering/Resolving]
  - Productive cough [Recovering/Resolving]
  - Abdominal distension [Recovering/Resolving]
